FAERS Safety Report 17207825 (Version 1)
Quarter: 2019Q4

REPORT INFORMATION
  Report Type: Spontaneous
  Country: NZ (occurrence: NZ)
  Receive Date: 20191227
  Receipt Date: 20191227
  Transmission Date: 20200122
  Serious: Yes (Death)
  Sender: FDA-Public Use
  Company Number: NZ-PFIZER INC-2019551234

PATIENT
  Age: 55 Year
  Sex: Male

DRUGS (3)
  1. CEFUROXIME. [Suspect]
     Active Substance: CEFUROXIME
     Dosage: UNK
     Route: 042
  2. GENTAMICIN SULFATE. [Suspect]
     Active Substance: GENTAMICIN SULFATE
     Indication: ESCHERICHIA INFECTION
     Dosage: UNK
     Route: 042
  3. AMOXICILLIN. [Suspect]
     Active Substance: AMOXICILLIN
     Indication: ESCHERICHIA INFECTION
     Dosage: UNK

REACTIONS (1)
  - Drug ineffective [Fatal]
